FAERS Safety Report 10559114 (Version 2)
Quarter: 2014Q4

REPORT INFORMATION
  Report Type: Spontaneous
  Country: FR (occurrence: FR)
  Receive Date: 20141103
  Receipt Date: 20141110
  Transmission Date: 20150529
  Serious: Yes (Hospitalization, Other)
  Sender: FDA-Public Use
  Company Number: FR-ROCHE-1481313

PATIENT
  Age: 55 Year
  Sex: Male
  Weight: 59 kg

DRUGS (12)
  1. ZARZIO [Suspect]
     Active Substance: FILGRASTIM
     Indication: PRODUCT USED FOR UNKNOWN INDICATION
     Route: 065
     Dates: start: 20140916, end: 20140918
  2. POLARAMINE [Concomitant]
     Active Substance: DEXCHLORPHENIRAMINE MALEATE
  3. TAXOL [Suspect]
     Active Substance: PACLITAXEL
     Indication: PRODUCT USED FOR UNKNOWN INDICATION
     Route: 042
     Dates: start: 20140915, end: 20140915
  4. EMEND [Concomitant]
     Active Substance: APREPITANT
  5. XENETIX [Suspect]
     Active Substance: IOBITRIDOL
     Indication: PRODUCT USED FOR UNKNOWN INDICATION
     Route: 065
     Dates: start: 20140929, end: 20140929
  6. OXYNORM [Concomitant]
     Active Substance: OXYCODONE HYDROCHLORIDE
  7. METHYLPREDNISOLONE. [Concomitant]
     Active Substance: METHYLPREDNISOLONE
  8. CISPLATIN. [Concomitant]
     Active Substance: CISPLATIN
  9. ASPEGIC (FRANCE) [Concomitant]
  10. HERCEPTIN [Suspect]
     Active Substance: TRASTUZUMAB
     Indication: ADENOCARCINOMA GASTRIC
     Route: 042
     Dates: start: 20140915, end: 20140915
  11. ZOPHREN [Concomitant]
     Active Substance: ONDANSETRON
  12. OXYCONTIN [Concomitant]
     Active Substance: OXYCODONE HYDROCHLORIDE

REACTIONS (6)
  - Pruritus [Recovering/Resolving]
  - Extravasation [Recovered/Resolved]
  - Rash erythematous [Recovering/Resolving]
  - Rash pustular [Recovering/Resolving]
  - Skin exfoliation [Recovering/Resolving]
  - Eosinophilia [Recovering/Resolving]

NARRATIVE: CASE EVENT DATE: 20140929
